FAERS Safety Report 6317000-7 (Version None)
Quarter: 2009Q3

REPORT INFORMATION
  Report Type: 
  Country: None (occurrence: None)
  Receive Date: 20090820
  Receipt Date: 20090811
  Transmission Date: 20100115
  Serious: Yes (Other)
  Sender: FDA-Public Use
  Company Number: US-WYE-H10561609

PATIENT
  Sex: Female
  Weight: 63.11 kg

DRUGS (8)
  1. PRISTIQ [Suspect]
     Indication: DEPRESSION
     Route: 048
     Dates: start: 20090501, end: 20090701
  2. PRISTIQ [Suspect]
     Route: 048
     Dates: start: 20090701, end: 20090801
  3. NEXIUM [Concomitant]
     Indication: GASTROOESOPHAGEAL REFLUX DISEASE
     Dosage: UNKNOWN
  4. HYDROCODONE [Suspect]
     Indication: BACK PAIN
     Dosage: OVERDOSE AMOUNT OF 8 TO 10
     Dates: start: 20090801, end: 20090801
  5. AZITHROMYCIN [Concomitant]
     Indication: INFECTION
     Dosage: UNKNOWN
     Dates: start: 20090701, end: 20090705
  6. ZOMIG [Concomitant]
     Indication: MIGRAINE
     Dosage: UNKNOWN DOSE, AS NEEDED
  7. ATIVAN [Concomitant]
     Indication: ANXIETY
     Dosage: UNKNOWN
  8. MOBIC [Concomitant]
     Indication: BACK PAIN
     Dosage: UNKNOWN DOSE, AS NEEDED

REACTIONS (6)
  - CONDITION AGGRAVATED [None]
  - DEPRESSION [None]
  - DRUG INEFFECTIVE [None]
  - INTENTIONAL OVERDOSE [None]
  - SUICIDAL IDEATION [None]
  - SUICIDE ATTEMPT [None]
